FAERS Safety Report 4494763-7 (Version None)
Quarter: 2004Q4

REPORT INFORMATION
  Report Type: 
  Country: None (occurrence: None)
  Receive Date: 20041103
  Receipt Date: 20041018
  Transmission Date: 20050328
  Serious: Yes (Death, Hospitalization)
  Sender: FDA-Public Use
  Company Number: 2004-BP-10323RO

PATIENT
  Age: 87 Year
  Sex: Male

DRUGS (1)
  1. LIDOCAINE HCL TOPICAL SOLUTION USP, 4% (LIDOCAINE) [Suspect]
     Dosage: 50 ML X 1 PRE BRONCOSCOPY

REACTIONS (3)
  - DEPRESSED LEVEL OF CONSCIOUSNESS [None]
  - MEDICATION ERROR [None]
  - RESPIRATORY ARREST [None]
